FAERS Safety Report 23319489 (Version 1)
Quarter: 2023Q4

REPORT INFORMATION
  Report Type: Spontaneous
  Country: CN (occurrence: CN)
  Receive Date: 20231220
  Receipt Date: 20231220
  Transmission Date: 20240110
  Serious: Yes (Other)
  Sender: FDA-Public Use
  Company Number: CN-HUTCHMED LIMITED-HMP2023CN01935

PATIENT
  Age: 61 Year
  Sex: Female
  Weight: 43.5 kg

DRUGS (5)
  1. FRUQUINTINIB [Suspect]
     Active Substance: FRUQUINTINIB
     Indication: Colon cancer
     Dosage: 5 MILLIGRAM, QD
     Route: 048
     Dates: start: 20231021, end: 20231112
  2. TISLELIZUMAB [Suspect]
     Active Substance: TISLELIZUMAB
     Indication: Colon cancer
     Dosage: 200 MILLIGRAM
     Route: 041
     Dates: start: 20231021, end: 20231021
  3. TISLELIZUMAB [Suspect]
     Active Substance: TISLELIZUMAB
     Dosage: 200 MILLIGRAM
     Route: 041
     Dates: start: 20231111, end: 20231111
  4. RALTITREXED [Concomitant]
     Active Substance: RALTITREXED
     Indication: Colon cancer
     Dosage: 4 MILLIGRAM
     Dates: start: 20231021, end: 20231021
  5. RALTITREXED [Concomitant]
     Active Substance: RALTITREXED
     Dosage: 4 MILLIGRAM
     Dates: start: 20231111, end: 20231111

REACTIONS (1)
  - Hypothyroidism [Recovering/Resolving]

NARRATIVE: CASE EVENT DATE: 20231109
